FAERS Safety Report 8258556-7 (Version None)
Quarter: 2012Q2

REPORT INFORMATION
  Report Type: 
  Country: None (occurrence: None)
  Receive Date: 20120404
  Receipt Date: 20120330
  Transmission Date: 20120825
  Serious: Yes (Death)
  Sender: FDA-Public Use
  Company Number: US-ASTELLAS-2012US003301

PATIENT
  Sex: Male
  Weight: 72 kg

DRUGS (1)
  1. PROGRAF [Suspect]
     Indication: HEART TRANSPLANT
     Dosage: 2.5 MG, BID
     Route: 048
     Dates: start: 20091006, end: 20120305

REACTIONS (1)
  - DEATH [None]
